FAERS Safety Report 6148161-0 (Version None)
Quarter: 2009Q2

REPORT INFORMATION
  Report Type: 
  Country: None (occurrence: None)
  Receive Date: 20090408
  Receipt Date: 20090327
  Transmission Date: 20091009
  Serious: Yes (Death, Hospitalization)
  Sender: FDA-Public Use
  Company Number: DE-PFIZER INC-2008094466

PATIENT

DRUGS (23)
  1. ZYVOXID [Suspect]
     Indication: PNEUMONIA STAPHYLOCOCCAL
     Dosage: DAILY
     Route: 042
     Dates: start: 20070808, end: 20070816
  2. AVELOX [Suspect]
     Dosage: 400 MG, UNK
     Route: 042
     Dates: start: 20070726, end: 20070726
  3. AVELOX [Suspect]
     Dosage: 400 MG, 1X/DAY
     Route: 048
     Dates: start: 20070727, end: 20070805
  4. CEFUROXIME [Suspect]
     Indication: URINARY TRACT INFECTION
     Dosage: 1500 MG, 2X/DAY
     Route: 042
     Dates: start: 20070806, end: 20070806
  5. CEFUROXIME [Suspect]
     Dosage: 1500 MG, 3X/DAY
     Route: 042
     Dates: start: 20070807, end: 20070807
  6. CEFUROXIME [Suspect]
     Dosage: 1500 MG, 1X/DAY
     Route: 042
     Dates: start: 20070807, end: 20070815
  7. TYGACIL [Suspect]
     Dosage: UNK
     Dates: start: 20070816, end: 20070101
  8. CEFTRIAXONE [Suspect]
     Dosage: UNK
     Dates: end: 20070916
  9. ASPIRIN [Concomitant]
     Dosage: 100 MG, UNK
     Route: 048
     Dates: end: 20070601
  10. INSULIN [Concomitant]
     Dosage: UNK
     Dates: start: 20000101, end: 20070601
  11. THEOPHYLLINE [Concomitant]
     Dosage: 750 MG, UNK
  12. DELIX [Concomitant]
     Dosage: 10 MG, UNK
  13. ATACAND [Concomitant]
     Dosage: 32 MG, UNK
  14. TORSEMIDE [Concomitant]
     Dosage: 10 MG, UNK
  15. PHYSIOTENS [Concomitant]
     Dosage: 0.4 MG, UNK
  16. NEBILET [Concomitant]
     Dosage: 5 MG, UNK
  17. PANTOPRAZOLE [Concomitant]
  18. POTASSIUM [Concomitant]
  19. MODURETIC 5-50 [Concomitant]
  20. BUDESONIDE [Concomitant]
  21. SULTANOL [Concomitant]
  22. ATROVENT [Concomitant]
  23. NORVASC [Concomitant]

REACTIONS (6)
  - BLOOD BILIRUBIN INCREASED [None]
  - HEPATIC ENCEPHALOPATHY [None]
  - HEPATIC FAILURE [None]
  - HEPATITIS ACUTE [None]
  - JAUNDICE [None]
  - TRANSAMINASES INCREASED [None]
